FAERS Safety Report 5812233-8 (Version None)
Quarter: 2008Q3

REPORT INFORMATION
  Report Type: 
  Country: None (occurrence: None)
  Receive Date: 20080716
  Receipt Date: 20080709
  Transmission Date: 20090109
  Serious: Yes (Hospitalization)
  Sender: FDA-Public Use
  Company Number: US-MERCK-0807USA01570

PATIENT
  Age: 53 Year
  Sex: Female

DRUGS (14)
  1. JANUVIA [Suspect]
     Indication: TYPE 2 DIABETES MELLITUS
     Route: 048
  2. ARIPIPRAZOLE [Concomitant]
     Route: 065
  3. BENAZEPRIL HYDROCHLORIDE [Concomitant]
     Route: 065
  4. CEFUROXIME [Concomitant]
     Route: 065
  5. DIGOXIN [Concomitant]
     Route: 065
  6. DILTIAZEM HYDROCHLORIDE [Concomitant]
     Route: 065
  7. FENOFIBRATE [Concomitant]
     Route: 065
  8. FEXOFENADINE HYDROCHLORIDE [Concomitant]
     Route: 065
  9. INSULIN [Concomitant]
     Route: 065
  10. LEVOTHYROXINE SODIUM [Concomitant]
     Route: 065
  11. MEDROXYPROGESTERONE ACETATE [Concomitant]
     Route: 065
  12. ESTROGENS, CONJUGATED [Concomitant]
     Route: 065
  13. SIMVASTATIN [Concomitant]
     Route: 065
  14. EFFEXOR XR [Concomitant]
     Route: 065

REACTIONS (3)
  - ELECTROLYTE IMBALANCE [None]
  - PURPURA [None]
  - VASCULITIS [None]
